FAERS Safety Report 6529185-8 (Version None)
Quarter: 2010Q1

REPORT INFORMATION
  Report Type: 
  Country: None (occurrence: None)
  Receive Date: 20100107
  Receipt Date: 20080422
  Transmission Date: 20100710
  Serious: Yes (Disabling)
  Sender: FDA-Public Use
  Company Number: DE-BRACCO-000066

PATIENT
  Age: 49 Year
  Sex: Female
  Weight: 80 kg

DRUGS (7)
  1. OMNISCAN [Suspect]
     Indication: NUCLEAR MAGNETIC RESONANCE IMAGING
     Route: 042
     Dates: start: 20041111, end: 20041111
  2. PROHANCE [Concomitant]
     Indication: NUCLEAR MAGNETIC RESONANCE IMAGING
     Route: 065
     Dates: start: 20060626, end: 20060626
  3. PROHANCE [Concomitant]
     Route: 065
     Dates: start: 20041130, end: 20041130
  4. PROHANCE [Concomitant]
     Route: 065
     Dates: start: 20060622, end: 20060622
  5. ERYTHROPOETIN [Concomitant]
     Route: 065
  6. MAGNEVIST [Concomitant]
     Indication: ANGIOGRAM
     Route: 065
     Dates: start: 20050801, end: 20050801
  7. MAGNEVIST [Concomitant]
     Route: 065
     Dates: start: 20050822, end: 20050822

REACTIONS (1)
  - NEPHROGENIC SYSTEMIC FIBROSIS [None]
